FAERS Safety Report 8061131-0 (Version None)
Quarter: 2012Q1

REPORT INFORMATION
  Report Type: 
  Country: None (occurrence: None)
  Receive Date: 20120120
  Receipt Date: 20110531
  Transmission Date: 20120608
  Serious: No
  Sender: FDA-Public Use
  Company Number: US-ALLERGAN-1107457US

PATIENT
  Age: 85 Year
  Sex: Female

DRUGS (2)
  1. LIQUITEARS [Concomitant]
     Indication: DRY EYE
     Dosage: 1 GTT, PRN
     Route: 047
  2. RESTASIS [Suspect]
     Indication: DRY EYE
     Dosage: 1 GTT, BID
     Route: 047

REACTIONS (8)
  - VITREOUS FLOATERS [None]
  - FOREIGN BODY SENSATION IN EYES [None]
  - REFRACTION DISORDER [None]
  - VISION BLURRED [None]
  - EYE IRRITATION [None]
  - EYE DISCHARGE [None]
  - OCULAR HYPERAEMIA [None]
  - PHOTOPSIA [None]
